FAERS Safety Report 22522928 (Version 1)
Quarter: 2023Q2

REPORT INFORMATION
  Report Type: Report from Study
  Country: CA (occurrence: CA)
  Receive Date: 20230606
  Receipt Date: 20230606
  Transmission Date: 20230721
  Serious: Yes (Other)
  Sender: FDA-Public Use
  Company Number: CA-ABBVIE-5275901

PATIENT
  Sex: Male

DRUGS (1)
  1. HUMIRA [Suspect]
     Active Substance: ADALIMUMAB
     Indication: Crohn^s disease
     Route: 058
     Dates: start: 20090608

REACTIONS (3)
  - Small intestinal obstruction [Unknown]
  - Scar [Unknown]
  - Hypophagia [Unknown]

NARRATIVE: CASE EVENT DATE: 20230101
